FAERS Safety Report 11998253 (Version 2)
Quarter: 2016Q3

REPORT INFORMATION
  Report Type: Report from Study
  Country: DE (occurrence: DE)
  Receive Date: 20160203
  Receipt Date: 20160817
  Transmission Date: 20161109
  Serious: Yes (Hospitalization)
  Sender: FDA-Public Use
  Company Number: DE-ABBVIE-16K-062-1548970-00

PATIENT
  Age: 71 Year
  Sex: Male

DRUGS (4)
  1. HUMIRA [Suspect]
     Active Substance: ADALIMUMAB
     Indication: RHEUMATOID ARTHRITIS
     Route: 058
     Dates: start: 201503, end: 201506
  2. ORENCIA [Suspect]
     Active Substance: ABATACEPT
     Indication: PRODUCT USED FOR UNKNOWN INDICATION
     Route: 065
     Dates: start: 201507, end: 201507
  3. METHOTREXATE. [Suspect]
     Active Substance: METHOTREXATE
     Indication: PRODUCT USED FOR UNKNOWN INDICATION
     Route: 065
     Dates: end: 2015
  4. METHOTREXATE. [Suspect]
     Active Substance: METHOTREXATE
     Route: 065
     Dates: start: 2015

REACTIONS (9)
  - Oedema peripheral [Unknown]
  - Spinal fracture [Unknown]
  - Dysphagia [Unknown]
  - Local swelling [Unknown]
  - Aortic dilatation [Unknown]
  - Tachycardia [Unknown]
  - Chest pain [Recovered/Resolved]
  - Palpitations [Recovered/Resolved]
  - Kyphosis [Recovered/Resolved]

NARRATIVE: CASE EVENT DATE: 20160208
